FAERS Safety Report 8734707 (Version 2)
Quarter: 2014Q2

REPORT INFORMATION
  Report Type: Spontaneous
  Country: GB (occurrence: GB)
  Receive Date: 20120821
  Receipt Date: 20140501
  Transmission Date: 20141212
  Serious: Yes (Death)
  Sender: FDA-Public Use
  Company Number: PHHY2012GB071727

PATIENT
  Age: 2 Hour
  Sex: Male

DRUGS (2)
  1. METHADONE [Suspect]
     Route: 064
  2. PROMETHAZINE [Suspect]
     Route: 064

REACTIONS (3)
  - Neonatal hypoxia [Fatal]
  - Toxicity to various agents [Fatal]
  - Foetal exposure during pregnancy [Unknown]
